FAERS Safety Report 8008865-1 (Version None)
Quarter: 2011Q4

REPORT INFORMATION
  Report Type: 
  Country: None (occurrence: None)
  Receive Date: 20111227
  Receipt Date: 20111216
  Transmission Date: 20120403
  Serious: Yes (Hospitalization, Other)
  Sender: FDA-Public Use
  Company Number: JP-ASTRAZENECA-2011SE74892

PATIENT
  Age: 11 Year
  Sex: Male
  Weight: 33 kg

DRUGS (6)
  1. SEVOFLURANE [Concomitant]
     Dosage: DOSE UNKNOWN
     Route: 065
  2. PROPOFOL [Suspect]
     Indication: LOCAL ANAESTHESIA
     Dosage: DOSE UNKNOWN
     Route: 008
  3. DEXMEDETOMIDINE HYDROCHLORIDE [Concomitant]
     Dosage: DOSE UNKNOWN
     Route: 065
  4. REMIFENTANIL HYDROCHLORIDE [Concomitant]
     Dosage: DOSE UNKNOWN
     Route: 065
  5. FENTANYL [Concomitant]
     Dosage: DOSE UNKNOWN
     Route: 065
  6. ROCURONIUM BROMIDE [Concomitant]
     Dosage: DOSE UNKNOWN
     Route: 065

REACTIONS (1)
  - RHABDOMYOLYSIS [None]
